FAERS Safety Report 4796810-1 (Version None)
Quarter: 2005Q4

REPORT INFORMATION
  Report Type: 
  Country: None (occurrence: None)
  Receive Date: 20051011
  Receipt Date: 20051011
  Transmission Date: 20060501
  Serious: Yes (Other)
  Sender: FDA-Public Use
  Company Number: None

PATIENT
  Age: 41 Year
  Sex: Male
  Weight: 81.6475 kg

DRUGS (4)
  1. OXYCODONE SR 40MG [Suspect]
     Indication: PAIN
     Dosage: 40MG BID PO
     Route: 048
  2. IBUPROFEN [Concomitant]
  3. SENNA [Concomitant]
  4. GLYCCOLAX [Concomitant]

REACTIONS (5)
  - ANXIETY [None]
  - FEAR [None]
  - MIDDLE INSOMNIA [None]
  - MORBID THOUGHTS [None]
  - PHARMACEUTICAL PRODUCT COMPLAINT [None]
